FAERS Safety Report 20659234 (Version 2)
Quarter: 2022Q2

REPORT INFORMATION
  Report Type: Spontaneous
  Country: US (occurrence: US)
  Receive Date: 20220331
  Receipt Date: 20220407
  Transmission Date: 20220720
  Serious: No
  Sender: FDA-Public Use
  Company Number: US-MYLANLABS-2022M1022524

PATIENT
  Sex: Female
  Weight: 83.91 kg

DRUGS (2)
  1. POTASSIUM CHLORIDE [Suspect]
     Active Substance: POTASSIUM CHLORIDE
     Indication: Muscle spasms
     Dosage: 10 MEQ TABLETS TO BE TAKEN 2 TABLETS DAILY
     Route: 048
     Dates: start: 20220209
  2. ALBUTEROL [Suspect]
     Active Substance: ALBUTEROL
     Indication: Chronic obstructive pulmonary disease
     Dosage: UNK

REACTIONS (2)
  - Drug ineffective [Unknown]
  - Product residue present [Unknown]
